FAERS Safety Report 9055954 (Version 1)
Quarter: 2013Q1

REPORT INFORMATION
  Report Type: Spontaneous
  Country: US (occurrence: US)
  Receive Date: 20130206
  Receipt Date: 20130206
  Transmission Date: 20140127
  Serious: No
  Sender: FDA-Public Use
  Company Number: US-ALLERGAN-1200059US

PATIENT
  Sex: Female

DRUGS (3)
  1. RESTASIS [Suspect]
     Indication: DRY EYE
     Dosage: 2 GTT, BID
     Route: 047
     Dates: start: 20120101, end: 20120103
  2. RESTASIS [Suspect]
     Indication: VISION BLURRED
  3. RESTASIS [Suspect]
     Indication: ERYTHEMA

REACTIONS (3)
  - Expired drug administered [Unknown]
  - Scleral hyperaemia [Unknown]
  - Vision blurred [Unknown]
